FAERS Safety Report 4344383-X (Version None)
Quarter: 2004Q2

REPORT INFORMATION
  Report Type: 
  Country: None (occurrence: None)
  Receive Date: 20040422
  Receipt Date: 20040409
  Transmission Date: 20050107
  Serious: Yes (Hospitalization, Other)
  Sender: FDA-Public Use
  Company Number: FR-BRISTOL-MYERS SQUIBB COMPANY-12566980

PATIENT
  Age: 68 Year
  Sex: Male

DRUGS (11)
  1. UROMITEXAN [Suspect]
     Indication: NON-HODGKIN'S LYMPHOMA
     Dosage: 100 MG
     Route: 042
     Dates: start: 20040220, end: 20040220
  2. ENDOXAN [Suspect]
     Indication: NON-HODGKIN'S LYMPHOMA
     Dosage: 100 MG
     Route: 042
     Dates: start: 20040220, end: 20040220
  3. ONCOVIN [Suspect]
     Indication: NON-HODGKIN'S LYMPHOMA
     Route: 042
     Dates: start: 20040220, end: 20040220
  4. ADRIAMYCIN [Suspect]
     Indication: NON-HODGKIN'S LYMPHOMA
     Dates: start: 20040220, end: 20040220
  5. SOLU-MEDROL [Concomitant]
  6. OMEPRAZOLE [Concomitant]
  7. BACTRIM [Concomitant]
  8. MABTHERA [Concomitant]
     Route: 042
     Dates: start: 20040221, end: 20040221
  9. GLUCOPHAGE [Concomitant]
  10. GAVISCON [Concomitant]
  11. SPECIAFOLDINE [Concomitant]

REACTIONS (4)
  - BUNDLE BRANCH BLOCK LEFT [None]
  - BUNDLE BRANCH BLOCK RIGHT [None]
  - CORONARY ARTERY STENOSIS [None]
  - MYOCARDIAL INFARCTION [None]
